FAERS Safety Report 6874144-9 (Version None)
Quarter: 2010Q3

REPORT INFORMATION
  Report Type: 
  Country: None (occurrence: None)
  Receive Date: 20100723
  Receipt Date: 20090625
  Transmission Date: 20110219
  Serious: No
  Sender: FDA-Public Use
  Company Number: US-PFIZER INC-2009209340

PATIENT
  Sex: Female
  Weight: 69 kg

DRUGS (3)
  1. CHANTIX [Suspect]
     Indication: SMOKING CESSATION THERAPY
     Dosage: 0.5 MG, 1X/DAY
     Route: 048
     Dates: start: 20090401, end: 20090401
  2. LITHIUM CARBONATE [Concomitant]
  3. TOPAMAX [Concomitant]

REACTIONS (6)
  - ABNORMAL DREAMS [None]
  - DEPRESSION [None]
  - DYSPHAGIA [None]
  - NAUSEA [None]
  - TOBACCO USER [None]
  - VOMITING [None]
